FAERS Safety Report 16977672 (Version 1)
Quarter: 2019Q4

REPORT INFORMATION
  Report Type: Spontaneous
  Country: CA (occurrence: CA)
  Receive Date: 20191031
  Receipt Date: 20191031
  Transmission Date: 20200122
  Serious: Yes (Hospitalization, Disabling)
  Sender: FDA-Public Use
  Company Number: CA-TEVA-2019-CA-1128105

PATIENT
  Age: 95 Year
  Sex: Male
  Weight: 56 kg

DRUGS (1)
  1. DONEPEZIL. [Suspect]
     Active Substance: DONEPEZIL

REACTIONS (2)
  - Weight decreased [Unknown]
  - Hypersomnia [Unknown]
